FAERS Safety Report 17981395 (Version 12)
Quarter: 2021Q2

REPORT INFORMATION
  Report Type: Spontaneous
  Country: CA (occurrence: CA)
  Receive Date: 20200706
  Receipt Date: 20210427
  Transmission Date: 20210717
  Serious: Yes (Other)
  Sender: FDA-Public Use
  Company Number: CA-CELLTRION INC.-2019CA028005

PATIENT

DRUGS (20)
  1. INFLECTRA [Suspect]
     Active Substance: INFLIXIMAB-DYYB
     Dosage: 900 MG, 0, 2, 6 WEEKS, THEN EVERY 8 WEEKS
     Route: 042
     Dates: start: 20200205, end: 202004
  2. ACETAMINOPHEN. [Concomitant]
     Active Substance: ACETAMINOPHEN
     Dosage: 650 MG
     Route: 048
     Dates: start: 20200723, end: 20200723
  3. DIMENHYDRINATE. [Concomitant]
     Active Substance: DIMENHYDRINATE
     Dosage: 50 MG
     Route: 048
     Dates: start: 20200723, end: 20200723
  4. INFLECTRA [Suspect]
     Active Substance: INFLIXIMAB-DYYB
     Dosage: 900 MG, 0, 2, 6 WEEKS, THEN EVERY 8 WEEKS
     Route: 042
     Dates: start: 20200916
  5. ACETAMINOPHEN. [Concomitant]
     Active Substance: ACETAMINOPHEN
     Dosage: 650 MG
     Route: 048
     Dates: start: 20200916, end: 20200916
  6. DIMENHYDRINATE. [Concomitant]
     Active Substance: DIMENHYDRINATE
     Indication: PREMEDICATION
     Dosage: 50 MG
     Route: 048
     Dates: start: 20200625, end: 20200625
  7. SULFASALAZINE. [Concomitant]
     Active Substance: SULFASALAZINE
     Dosage: 1000 MG, 2X/DAY
     Dates: start: 2018
  8. INFLECTRA [Suspect]
     Active Substance: INFLIXIMAB-DYYB
     Dosage: 900 MG, 0, 2, 6 WEEKS, THEN EVERY 8WEEKS (RE?INDUCTION)
     Route: 042
     Dates: start: 20200611
  9. DIMENHYDRINATE. [Concomitant]
     Active Substance: DIMENHYDRINATE
     Dosage: 50 MG
     Route: 048
     Dates: start: 20200916, end: 20200916
  10. INFLECTRA [Suspect]
     Active Substance: INFLIXIMAB-DYYB
     Indication: RHEUMATOID ARTHRITIS
     Dosage: 900 MG, 0, 2, 6 WEEKS, THEN EVERY 8 WEEKS
     Route: 042
     Dates: start: 20200122, end: 20200205
  11. INFLECTRA [Suspect]
     Active Substance: INFLIXIMAB-DYYB
     Dosage: 900 MG, 0, 2, 6 WEEKS, THEN EVERY 8 WEEKS (RE?INDUCTION)
     Route: 042
     Dates: start: 20200611
  12. INFLECTRA [Suspect]
     Active Substance: INFLIXIMAB-DYYB
     Dosage: 900 MG, 0, 2, 6 WEEKS, THEN EVERY 8 WEEKS
     Route: 042
     Dates: start: 20200625
  13. INFLECTRA [Suspect]
     Active Substance: INFLIXIMAB-DYYB
     Dosage: 900 MG, 0, 2, 6 WEEKS, THEN EVERY 8 WEEKS
     Route: 042
     Dates: start: 20200723
  14. INFLECTRA [Suspect]
     Active Substance: INFLIXIMAB-DYYB
     Dosage: 900 MG, 0, 2, 6 WEEKS, THEN EVERY 8 WEEKS
     Route: 042
     Dates: start: 20200723
  15. INFLECTRA [Suspect]
     Active Substance: INFLIXIMAB-DYYB
     Dosage: 900 MG, 0, 2, 6 WEEKS, THEN EVERY 8 WEEKS
     Route: 042
     Dates: start: 20200723
  16. INFLECTRA [Suspect]
     Active Substance: INFLIXIMAB-DYYB
     Dosage: 900 MG, 0, 2, 6 WEEKS, THEN EVERY 8 WEEKS
     Route: 042
     Dates: start: 20200916
  17. ACETAMINOPHEN. [Concomitant]
     Active Substance: ACETAMINOPHEN
     Indication: PREMEDICATION
     Dosage: 650 MG
     Dates: start: 20200625, end: 20200625
  18. INFLECTRA [Suspect]
     Active Substance: INFLIXIMAB-DYYB
     Dosage: 900 MG, 0, 2, 6 WEEKS, THEN EVERY 8 WEEKS (RE?INDUCTION)
     Route: 042
     Dates: start: 20200611
  19. INFLECTRA [Suspect]
     Active Substance: INFLIXIMAB-DYYB
     Dosage: 900 MG, 0, 2, 6 WEEKS, THEN EVERY 8 WEEKS
     Route: 042
     Dates: start: 20201221
  20. METHOTREXATE. [Concomitant]
     Active Substance: METHOTREXATE
     Dosage: 25 MG, WEEKLY
     Route: 058
     Dates: start: 2018

REACTIONS (26)
  - Off label use [Unknown]
  - Nausea [Unknown]
  - Vomiting [Unknown]
  - Pyrexia [Unknown]
  - Malaise [Not Recovered/Not Resolved]
  - Cough [Unknown]
  - Heart rate increased [Unknown]
  - Blood pressure diastolic decreased [Unknown]
  - Product dose omission issue [Unknown]
  - Feeling hot [Recovering/Resolving]
  - Lower respiratory tract infection [Recovered/Resolved]
  - Oropharyngeal pain [Unknown]
  - Chest pain [Unknown]
  - Malaise [Recovering/Resolving]
  - Oedema peripheral [Recovered/Resolved]
  - Dyspnoea [Unknown]
  - Diarrhoea [Unknown]
  - Skin lesion [Unknown]
  - Arthropathy [Unknown]
  - Arthritis reactive [Unknown]
  - Restless legs syndrome [Unknown]
  - Blood pressure increased [Unknown]
  - C-reactive protein increased [Unknown]
  - Weight decreased [Unknown]
  - Influenza [Unknown]
  - Chills [Recovering/Resolving]

NARRATIVE: CASE EVENT DATE: 2020
